FAERS Safety Report 7912281-8 (Version None)
Quarter: 2011Q4

REPORT INFORMATION
  Report Type: 
  Country: None (occurrence: None)
  Receive Date: 20111114
  Receipt Date: 20111102
  Transmission Date: 20120403
  Serious: Yes (Other)
  Sender: FDA-Public Use
  Company Number: US-AMGEN-USASP2011052807

PATIENT
  Age: 48 Year
  Sex: Male

DRUGS (2)
  1. TREXALL [Concomitant]
     Dosage: 1 MG, QWK
     Dates: start: 20110501
  2. ENBREL [Suspect]
     Indication: RHEUMATOID ARTHRITIS
     Dosage: 50 MG, QWK
     Dates: start: 20110901

REACTIONS (6)
  - MOOD ALTERED [None]
  - NERVOUS SYSTEM DISORDER [None]
  - COGNITIVE DISORDER [None]
  - MEMORY IMPAIRMENT [None]
  - DYSARTHRIA [None]
  - SOCIAL AVOIDANT BEHAVIOUR [None]
